FAERS Safety Report 5583181-6 (Version None)
Quarter: 2008Q1

REPORT INFORMATION
  Report Type: 
  Country: None (occurrence: None)
  Receive Date: 20080103
  Receipt Date: 20080103
  Transmission Date: 20080703
  Serious: Yes (Hospitalization)
  Sender: FDA-Public Use
  Company Number: None

PATIENT
  Age: 83 Year
  Sex: Female

DRUGS (2)
  1. MIRTAZAPINE [Suspect]
     Indication: DEPRESSION
  2. ROSUVASTATIN [Suspect]
     Indication: HYPERCHOLESTEROLAEMIA

REACTIONS (9)
  - BLOOD CREATINE PHOSPHOKINASE INCREASED [None]
  - DRUG ERUPTION [None]
  - DYSSTASIA [None]
  - ERYTHEMA MULTIFORME [None]
  - MYOPATHY [None]
  - NO THERAPEUTIC RESPONSE [None]
  - PAIN IN EXTREMITY [None]
  - SKIN LESION [None]
  - SKIN NODULE [None]
